FAERS Safety Report 21260161 (Version 1)
Quarter: 2022Q3

REPORT INFORMATION
  Report Type: Spontaneous
  Country: US (occurrence: None)
  Receive Date: 20220824
  Receipt Date: 20220824
  Transmission Date: 20221026
  Serious: No
  Sender: FDA-Public Use
  Company Number: None

PATIENT
  Age: 71 Year
  Sex: Female
  Weight: 63.9 kg

DRUGS (9)
  1. RECLAST [Suspect]
     Active Substance: ZOLEDRONIC ACID
     Indication: Osteoporosis
     Dates: start: 20220822, end: 20220822
  2. AMLODIPINE [Concomitant]
     Active Substance: AMLODIPINE BESYLATE
  3. ROSUVASTATIN [Concomitant]
     Active Substance: ROSUVASTATIN
  4. COENZYME Q10 [Concomitant]
     Active Substance: DIETARY SUPPLEMENT\UBIDECARENONE
  5. VITAMIN D [Concomitant]
     Active Substance: VITAMIN D NOS
  6. CALCIUM [Concomitant]
     Active Substance: CALCIUM
  7. HERBALS\TURMERIC [Concomitant]
     Active Substance: HERBALS\TURMERIC
  8. BEETS [Concomitant]
  9. MAGNESIUM [Concomitant]

REACTIONS (5)
  - Hyperhidrosis [None]
  - Headache [None]
  - Pain in extremity [None]
  - Pain in extremity [None]
  - Pyrexia [None]

NARRATIVE: CASE EVENT DATE: 20220822
